FAERS Safety Report 4943493-3 (Version None)
Quarter: 2006Q1

REPORT INFORMATION
  Report Type: 
  Country: None (occurrence: None)
  Receive Date: 20060309
  Receipt Date: 20060227
  Transmission Date: 20060701
  Serious: Yes (Congenital Anomaly)
  Sender: FDA-Public Use
  Company Number: FEI2006-0275

PATIENT
  Age: 34 Week
  Sex: Male
  Weight: 3.2292 kg

DRUGS (8)
  1. PARAGARD T380A(INTRAUTERINE CONTRACEPTIVES) [Suspect]
  2. DUET DHA (PRENATAL VITAMINS) [Concomitant]
  3. MARCAINE [Concomitant]
  4. MORPHINE [Concomitant]
  5. FENTANYL [Concomitant]
  6. PITOCIN (OXYTOCIN CITRATE) [Concomitant]
  7. FLEXERIL [Concomitant]
  8. ALEVE [Concomitant]

REACTIONS (3)
  - CAESAREAN SECTION [None]
  - CONGENITAL HYDRONEPHROSIS [None]
  - DRUG EXPOSURE DURING PREGNANCY [None]
